FAERS Safety Report 9023710 (Version 4)
Quarter: 2013Q1

REPORT INFORMATION
  Report Type: Spontaneous
  Country: US (occurrence: US)
  Receive Date: 20130121
  Receipt Date: 20130321
  Transmission Date: 20140127
  Serious: No
  Sender: FDA-Public Use
  Company Number: US-VERTEX PHARMACEUTICALS INC.-2013-000595

PATIENT
  Age: 55 None
  Sex: Male
  Weight: 109 kg

DRUGS (10)
  1. INCIVEK [Suspect]
     Indication: HEPATITIS C
     Dosage: 750 MG, TID
     Route: 048
     Dates: start: 20130121
  2. PEGASYS [Suspect]
     Indication: HEPATITIS C
     Dosage: 180 ?G, QW
     Route: 058
     Dates: start: 20130107
  3. RIBAVIRIN [Suspect]
     Indication: HEPATITIS C
     Dosage: 400 MG IN AM, 600 MG IN PM
     Route: 048
     Dates: start: 20130121
  4. PENTASA [Concomitant]
     Indication: CROHN^S DISEASE
     Dosage: UNK
     Dates: end: 201302
  5. FLONASE [Concomitant]
  6. LORAZEPAM [Concomitant]
     Indication: ANXIETY
     Dosage: 2 MG, QD
     Route: 048
  7. WELLBUTRIN XL [Concomitant]
     Indication: DEPRESSION
     Dosage: 150 MG, QD
     Route: 048
  8. OLANZOPINE [Concomitant]
     Indication: BIPOLAR I DISORDER
     Dosage: 15 MG, QD
     Route: 048
  9. ESTAZOLAM [Concomitant]
     Indication: INSOMNIA
     Dosage: 2-3 MG, PRN
     Route: 048
  10. OMEPRAZOLE [Concomitant]
     Indication: GASTROOESOPHAGEAL REFLUX DISEASE
     Dosage: 20 MG, QD
     Route: 048

REACTIONS (11)
  - Drug dose omission [Unknown]
  - Bone pain [Recovered/Resolved]
  - Myalgia [Recovered/Resolved]
  - Malaise [Unknown]
  - Feeling abnormal [Unknown]
  - Hypersomnia [Unknown]
  - Haemorrhoidal haemorrhage [Recovered/Resolved]
  - Diarrhoea [Recovered/Resolved]
  - Nausea [Recovered/Resolved]
  - Anal pruritus [Recovered/Resolved]
  - Anorectal discomfort [Recovered/Resolved]
